FAERS Safety Report 21851288 (Version 1)
Quarter: 2023Q1

REPORT INFORMATION
  Report Type: Spontaneous
  Country: ES (occurrence: ES)
  Receive Date: 20230112
  Receipt Date: 20230112
  Transmission Date: 20230418
  Serious: Yes (Hospitalization, Other)
  Sender: FDA-Public Use
  Company Number: ES-VALIDUS PHARMACEUTICALS LLC-ES-VDP-2023-015901

PATIENT

DRUGS (14)
  1. FUROSEMIDE [Suspect]
     Active Substance: FUROSEMIDE
     Indication: Hypertension
     Dosage: 40 MG
     Route: 048
     Dates: start: 20220620
  2. AMILORIDE HYDROCHLORIDE [Suspect]
     Active Substance: AMILORIDE HYDROCHLORIDE
     Indication: Hypertension
     Dosage: 1 DF
     Route: 048
     Dates: start: 20220620, end: 20220701
  3. OLANZAPINE [Suspect]
     Active Substance: OLANZAPINE
     Indication: Agitation
     Dosage: 30 MG
     Route: 048
     Dates: start: 20220622, end: 20220704
  4. FLUCONAZOLE [Suspect]
     Active Substance: FLUCONAZOLE
     Indication: Pneumonia
     Dosage: 200 MG
     Route: 065
     Dates: start: 20220702, end: 20220704
  5. VANCOMYCIN HYDROCHLORIDE [Concomitant]
     Active Substance: VANCOMYCIN HYDROCHLORIDE
     Indication: Pneumonia
     Dosage: UNK
     Route: 065
     Dates: start: 20220702, end: 20220706
  6. HIBOR [Concomitant]
     Indication: Prophylaxis
     Dosage: (SOLUTION FOR INJECTION IN PRE-FILLED SYRINGE)
     Route: 065
     Dates: start: 20220620, end: 20220718
  7. MAGNESIOBOI [Concomitant]
     Indication: Hypomagnesaemia
     Dosage: UNK
     Route: 065
     Dates: start: 20220625, end: 20220704
  8. ATORVASTATIN [Concomitant]
     Active Substance: ATORVASTATIN
     Indication: Acute myocardial infarction
     Dosage: UNK
     Route: 065
     Dates: start: 20220620
  9. TICAGRELOR [Concomitant]
     Active Substance: TICAGRELOR
     Indication: Acute myocardial infarction
     Dosage: UNK
     Route: 065
     Dates: start: 20220620
  10. ASPARTIC ACID\POTASSIUM ASCORBATE [Concomitant]
     Active Substance: ASPARTIC ACID\POTASSIUM ASCORBATE
     Indication: Hypokalaemia
     Dosage: UNK
     Route: 065
     Dates: start: 20220625, end: 20220704
  11. PIPERACILLIN SODIUM\TAZOBACTAM SODIUM [Concomitant]
     Active Substance: PIPERACILLIN SODIUM\TAZOBACTAM SODIUM
     Indication: Pneumonia
     Dosage: UNK
     Route: 065
     Dates: start: 20220701, end: 20220709
  12. MELATONIN [Concomitant]
     Active Substance: MELATONIN
     Indication: Insomnia
     Dosage: UNK
     Route: 065
     Dates: start: 20220629, end: 20220718
  13. PANTOPRAZOLE [Concomitant]
     Active Substance: PANTOPRAZOLE
     Indication: Prophylaxis
     Dosage: UNK
     Route: 065
     Dates: start: 20220620, end: 20220718
  14. ASPIRIN [Concomitant]
     Active Substance: ASPIRIN
     Indication: Acute myocardial infarction
     Dosage: UNK
     Route: 065
     Dates: start: 20220620

REACTIONS (2)
  - Anticholinergic syndrome [Recovered/Resolved]
  - Hyponatraemia [Recovered/Resolved]
